FAERS Safety Report 12068863 (Version 2)
Quarter: 2016Q2

REPORT INFORMATION
  Report Type: Report from Study
  Country: BE (occurrence: BE)
  Receive Date: 20160211
  Receipt Date: 20160413
  Transmission Date: 20160815
  Serious: Yes (Hospitalization)
  Sender: FDA-Public Use
  Company Number: BE-AMGEN-BELCT2016014913

PATIENT
  Age: 61 Year
  Sex: Female
  Weight: 65.7 kg

DRUGS (3)
  1. DABRAFENIB [Suspect]
     Active Substance: DABRAFENIB
     Indication: COLORECTAL CANCER
     Dosage: 150 MG, BID
     Route: 048
     Dates: start: 20140220
  2. PANITUMUMAB [Suspect]
     Active Substance: PANITUMUMAB
     Indication: COLORECTAL CANCER
     Dosage: 6 MG/KG, CYCLIC (326.40 MG, CYC)
     Route: 041
     Dates: start: 20140220
  3. TRAMETINIB [Suspect]
     Active Substance: TRAMETINIB
     Indication: COLORECTAL CANCER
     Dosage: 2 MG, 1D
     Route: 048
     Dates: start: 20140220

REACTIONS (1)
  - Urosepsis [Recovering/Resolving]

NARRATIVE: CASE EVENT DATE: 20150430
